FAERS Safety Report 25621972 (Version 2)
Quarter: 2025Q3

REPORT INFORMATION
  Report Type: Spontaneous
  Country: EU (occurrence: EU)
  Receive Date: 20250730
  Receipt Date: 20250908
  Transmission Date: 20251021
  Serious: Yes (Other)
  Sender: BAUSCH AND LOMB
  Company Number: EU-BAUSCH-BH-2025-015502

PATIENT
  Age: 66 Year
  Sex: Male

DRUGS (3)
  1. DEXAMETHASONE [Suspect]
     Active Substance: DEXAMETHASONE
     Indication: Plasma cell myeloma
     Route: 065
  2. BORTEZOMIB [Suspect]
     Active Substance: BORTEZOMIB
     Indication: Plasma cell myeloma
     Route: 065
  3. DOXORUBICIN [Suspect]
     Active Substance: DOXORUBICIN
     Indication: Plasma cell myeloma
     Route: 065

REACTIONS (3)
  - Pain [Recovered/Resolved]
  - Polyneuropathy [Recovering/Resolving]
  - Therapy partial responder [Unknown]
